FAERS Safety Report 5098537-8 (Version None)
Quarter: 2006Q3

REPORT INFORMATION
  Report Type: 
  Country: None (occurrence: None)
  Receive Date: 20060906
  Receipt Date: 20060221
  Transmission Date: 20061208
  Serious: No
  Sender: FDA-Public Use
  Company Number: US-GLAXOSMITHKLINE-A0594614A

PATIENT
  Age: 65 Year
  Sex: Female

DRUGS (8)
  1. REQUIP [Suspect]
     Indication: RESTLESS LEGS SYNDROME
     Dosage: .5MG PER DAY
     Route: 048
     Dates: start: 20050901
  2. NORVASC [Concomitant]
  3. PRILOSEC [Concomitant]
  4. DARVOCET-N 100 [Concomitant]
  5. HORMONE REPLACEMENT THERAPY [Concomitant]
  6. LIDODERM [Concomitant]
  7. CELEBREX [Concomitant]
  8. LEXAPRO [Concomitant]

REACTIONS (2)
  - INCORRECT ROUTE OF DRUG ADMINISTRATION [None]
  - THERAPEUTIC RESPONSE UNEXPECTED [None]
